FAERS Safety Report 10897909 (Version 3)
Quarter: 2015Q2

REPORT INFORMATION
  Report Type: Spontaneous
  Country: JP (occurrence: JP)
  Receive Date: 20150309
  Receipt Date: 20150603
  Transmission Date: 20150821
  Serious: Yes (Life-Threatening, Hospitalization)
  Sender: FDA-Public Use
  Company Number: PHJP2015JP002457

PATIENT
  Age: 78 Year
  Sex: Male
  Weight: 46 kg

DRUGS (8)
  1. ATELEC [Concomitant]
     Active Substance: CILNIDIPINE
     Indication: HYPERTENSION
     Dosage: 10 MG, QD
     Route: 048
     Dates: start: 20120220, end: 20131121
  2. PREDNISOLONE. [Concomitant]
     Active Substance: PREDNISOLONE
     Indication: GLOMERULONEPHRITIS CHRONIC
     Dosage: 5 MG, QD
     Route: 048
     Dates: start: 20120312, end: 20131121
  3. TAKEPRON [Concomitant]
     Active Substance: LANSOPRAZOLE
     Indication: GASTROOESOPHAGEAL REFLUX DISEASE
     Dosage: 30 MG, QD
     Route: 048
     Dates: start: 20120312, end: 20131121
  4. ALLEGRA [Concomitant]
     Active Substance: FEXOFENADINE HYDROCHLORIDE
     Indication: PRURITUS
     Dosage: 120 MG, QD
     Route: 048
     Dates: start: 20130604, end: 20131121
  5. OLMETEC [Concomitant]
     Active Substance: OLMESARTAN MEDOXOMIL
     Indication: HYPERTENSION
     Dosage: 20 MG, QD
     Route: 048
     Dates: start: 20120226, end: 20131121
  6. ADALAT [Concomitant]
     Active Substance: NIFEDIPINE
     Indication: HYPERTENSION
     Dosage: 20 MG, QD
     Route: 048
     Dates: start: 20131120, end: 20131121
  7. LOPRESSOR [Suspect]
     Active Substance: METOPROLOL TARTRATE
     Indication: HYPERTENSION
     Dosage: 60 MG, QD
     Route: 048
     Dates: start: 20131120, end: 20131121
  8. FEBURIC [Concomitant]
     Active Substance: FEBUXOSTAT
     Indication: HYPERURICAEMIA
     Dosage: 10 MG, QD
     Route: 048
     Dates: start: 20120517, end: 20131121

REACTIONS (10)
  - Hepatic encephalopathy [Recovering/Resolving]
  - Renal failure [None]
  - Aspiration [None]
  - Chronic kidney disease [None]
  - Coma [None]
  - Altered state of consciousness [Recovered/Resolved]
  - Ammonia increased [None]
  - Coma [Recovered/Resolved]
  - Continuous haemodiafiltration [None]
  - Hepatic failure [None]

NARRATIVE: CASE EVENT DATE: 20131121
